FAERS Safety Report 24989236 (Version 2)
Quarter: 2025Q4

REPORT INFORMATION
  Report Type: Spontaneous
  Country: EU (occurrence: EU)
  Receive Date: 20250220
  Receipt Date: 20251205
  Transmission Date: 20260117
  Serious: Yes (Hospitalization, Other)
  Sender: CELLTRION
  Company Number: EU-MYLANLABS-2017M1083338

PATIENT

DRUGS (15)
  1. TRASTUZUMAB [Suspect]
     Active Substance: TRASTUZUMAB
     Indication: Breast cancer female
     Dosage: 4 CYCLES WITH DOCETAXEL/TRASTUZUMAB, AND THEN TRASTUZUMAB WAS GIVEN ALONE FOR 1 YEAR/4XDOCETAXEL/TRA
  2. TRASTUZUMAB [Suspect]
     Active Substance: TRASTUZUMAB
     Indication: Breast cancer
  3. EPIRUBICIN [Suspect]
     Active Substance: EPIRUBICIN
     Indication: Breast cancer female
     Dosage: 4 CYCLES OF EPIRUBICIN/CYCLOPHOSPHAMIDE/4XEPIRUBICIN/CYCLOPHOSPHAMIDE (CYCLICAL)
  4. EPIRUBICIN [Suspect]
     Active Substance: EPIRUBICIN
     Indication: Breast cancer
  5. VENLAFAXINE [Suspect]
     Active Substance: VENLAFAXINE HYDROCHLORIDE
     Indication: Brain fog
     Dosage: 112.5 MG/DAY
  6. MIRTAZAPINE [Suspect]
     Active Substance: MIRTAZAPINE
     Indication: Brain fog
     Dosage: 15 MG/DAY
  7. LITHIUM [Suspect]
     Active Substance: LITHIUM
     Indication: Brain fog
     Dosage: 675 MILLIGRAM, QD
  8. ARIPIPRAZOLE [Suspect]
     Active Substance: ARIPIPRAZOLE
     Indication: Brain fog
     Dosage: 5 MILLIGRAM, QD
  9. QUETIAPINE [Suspect]
     Active Substance: QUETIAPINE
     Indication: Brain fog
     Dosage: 50 MILLIGRAM, QD
  10. CYCLOPHOSPHAMIDE [Suspect]
     Active Substance: CYCLOPHOSPHAMIDE
     Indication: Breast cancer female
     Dosage: 4 CYCLES OF EPIRUBICIN/CYCLOPHOSPHAMIDE/4XEPIRUBICIN/CYCLOPHOSPHAMIDE (CYCLICAL)
  11. CYCLOPHOSPHAMIDE [Suspect]
     Active Substance: CYCLOPHOSPHAMIDE
     Indication: Breast cancer
  12. DOCETAXEL [Suspect]
     Active Substance: DOCETAXEL
     Indication: Breast cancer female
     Dosage: 4 CYCLES OF DOCETAXEL/TRASTUZUMAB/4XDOCETAXEL/TRASTUZUMAB (CYCLICAL)
  13. DOCETAXEL [Suspect]
     Active Substance: DOCETAXEL
     Indication: Breast cancer
  14. GOSERELIN [Suspect]
     Active Substance: GOSERELIN
     Indication: Breast cancer female
  15. GOSERELIN [Concomitant]
     Active Substance: GOSERELIN
     Indication: Breast cancer

REACTIONS (2)
  - Brain fog [Recovering/Resolving]
  - Off label use [Recovering/Resolving]
